FAERS Safety Report 10076895 (Version 3)
Quarter: 2014Q2

REPORT INFORMATION
  Report Type: Spontaneous
  Country: US (occurrence: US)
  Receive Date: 20140414
  Receipt Date: 20140527
  Transmission Date: 20141212
  Serious: Yes (Hospitalization)
  Sender: FDA-Public Use
  Company Number: US-GLAXOSMITHKLINE-A1068247A

PATIENT
  Age: 80 Year
  Sex: Male

DRUGS (6)
  1. ADVAIR [Suspect]
     Indication: CHRONIC OBSTRUCTIVE PULMONARY DISEASE
     Dosage: 1PUFF TWICE PER DAY
     Route: 055
  2. ATENOLOL [Concomitant]
  3. HCTZ [Concomitant]
  4. METFORMIN [Concomitant]
  5. SIMVASTATIN [Concomitant]
  6. DILTIAZEM [Concomitant]

REACTIONS (3)
  - Coronary arterial stent insertion [Recovered/Resolved]
  - Dyspnoea [Recovered/Resolved]
  - Arterial occlusive disease [Recovered/Resolved]
